FAERS Safety Report 19867083 (Version 1)
Quarter: 2021Q3

REPORT INFORMATION
  Report Type: Spontaneous
  Country: US (occurrence: US)
  Receive Date: 20210922
  Receipt Date: 20210922
  Transmission Date: 20211014
  Serious: No
  Sender: FDA-Public Use
  Company Number: None

PATIENT
  Age: 79 Year
  Sex: Male
  Weight: 87.98 kg

DRUGS (9)
  1. ALPRAZOLAM. [Concomitant]
     Active Substance: ALPRAZOLAM
  2. MIRTAZEPINE [Concomitant]
     Active Substance: MIRTAZAPINE
  3. MONUROL [Concomitant]
     Active Substance: FOSFOMYCIN TROMETHAMINE
  4. BENICAR [Concomitant]
     Active Substance: OLMESARTAN MEDOXOMIL
  5. ZYTIGA [Concomitant]
     Active Substance: ABIRATERONE ACETATE
  6. PREDNISONE. [Concomitant]
     Active Substance: PREDNISONE
  7. ABIRATERONE ACETATE. [Suspect]
     Active Substance: ABIRATERONE ACETATE
     Route: 048
     Dates: start: 20210710
  8. LORAZEPAM. [Concomitant]
     Active Substance: LORAZEPAM
  9. TRAZODONE [Concomitant]
     Active Substance: TRAZODONE HYDROCHLORIDE

REACTIONS (1)
  - Hot flush [None]

NARRATIVE: CASE EVENT DATE: 20210922
